FAERS Safety Report 5249733-8 (Version None)
Quarter: 2007Q1

REPORT INFORMATION
  Report Type: 
  Country: None (occurrence: None)
  Receive Date: 20070228
  Receipt Date: 20070111
  Transmission Date: 20070707
  Serious: No
  Sender: FDA-Public Use
  Company Number: US-GLAXOSMITHKLINE-A0622491A

PATIENT
  Age: 51 Year
  Sex: Female

DRUGS (9)
  1. IMITREX [Suspect]
     Indication: MIGRAINE
     Dosage: 1INJ AS REQUIRED
     Route: 058
     Dates: start: 20061002
  2. IMITREX [Suspect]
     Route: 048
     Dates: start: 20060901
  3. DURAGESIC PATCHES [Concomitant]
  4. TEGRETOL [Concomitant]
  5. ALPRAZOLAM [Concomitant]
  6. CLONAZEPAM [Concomitant]
  7. BACLOFEN [Concomitant]
  8. VENTAMOL [Concomitant]
  9. ACTIQ [Concomitant]

REACTIONS (7)
  - CONTUSION [None]
  - ERYTHEMA [None]
  - INJECTION SITE HAEMORRHAGE [None]
  - PAIN [None]
  - PAIN IN EXTREMITY [None]
  - PHARMACEUTICAL PRODUCT COMPLAINT [None]
  - SCAB [None]
